FAERS Safety Report 6793493-6 (Version None)
Quarter: 2010Q2

REPORT INFORMATION
  Report Type: 
  Country: None (occurrence: None)
  Receive Date: 20100624
  Receipt Date: 20100428
  Transmission Date: 20101027
  Serious: Yes (Other)
  Sender: FDA-Public Use
  Company Number: US-MYLANLABS-2010S1006445

PATIENT
  Age: 31 Year
  Sex: Male

DRUGS (8)
  1. CLOZAPINE [Suspect]
     Indication: SCHIZOAFFECTIVE DISORDER
     Route: 048
     Dates: end: 20100322
  2. CLOZAPINE [Suspect]
     Route: 048
     Dates: start: 20100101
  3. ZYPREXA [Concomitant]
  4. RISPERIDONE [Concomitant]
  5. CLONAZEPAM [Concomitant]
  6. TEMAZEPAM [Concomitant]
  7. PAROXETINE [Concomitant]
  8. BENZTROPINE MESYLATE [Concomitant]

REACTIONS (2)
  - GRANULOCYTOPENIA [None]
  - LEUKOPENIA [None]
